FAERS Safety Report 8555402-9 (Version None)
Quarter: 2012Q3

REPORT INFORMATION
  Report Type: 
  Country: None (occurrence: None)
  Receive Date: 20120731
  Receipt Date: 20110926
  Transmission Date: 20120928
  Serious: No
  Sender: FDA-Public Use
  Company Number: US-ASTRAZENECA-2011SE27129

PATIENT
  Age: 40 Year
  Sex: Female
  Weight: 59 kg

DRUGS (3)
  1. SEROQUEL XR [Suspect]
     Indication: BIPOLAR I DISORDER
     Route: 048
  2. SEROQUEL XR [Suspect]
     Route: 048
  3. SEROQUEL XR [Suspect]
     Route: 048

REACTIONS (2)
  - CONTUSION [None]
  - OEDEMA PERIPHERAL [None]
